FAERS Safety Report 18105725 (Version 1)
Quarter: 2020Q3

REPORT INFORMATION
  Report Type: Spontaneous
  Country: SI (occurrence: SI)
  Receive Date: 20200803
  Receipt Date: 20200803
  Transmission Date: 20201103
  Serious: Yes (Hospitalization, Disabling, Other)
  Sender: FDA-Public Use
  Company Number: SI-AMGEN-SVKSP2020081252

PATIENT
  Age: 58 Year
  Sex: Female
  Weight: 60 kg

DRUGS (4)
  1. PLIVIT D3 [Concomitant]
     Active Substance: CHOLECALCIFEROL
     Indication: OSTEOPOROSIS
     Dosage: 35 DROP, QWK
  2. PROLIA [Suspect]
     Active Substance: DENOSUMAB
     Indication: OSTEOPOROSIS
     Dosage: UNK, Q6MO
     Route: 058
     Dates: start: 20170526, end: 20200120
  3. AMOKSIKLAV [AMOXICILLIN;CLAVULANIC ACID] [Concomitant]
     Indication: PERIPHERAL SWELLING
     Dosage: 1000 UNK, Q12H, OCCASIONALLY, 2X10 DAYS
  4. CALCIUM CARBONATE. [Concomitant]
     Active Substance: CALCIUM CARBONATE
     Indication: OSTEOPOROSIS
     Dosage: UNK, 1/2 DAYS

REACTIONS (3)
  - Cellulitis [Unknown]
  - Paronychia [Recovered/Resolved]
  - Osteitis [Recovered/Resolved]

NARRATIVE: CASE EVENT DATE: 201811
